FAERS Safety Report 6464576 (Version 3)
Quarter: 2013Q3

REPORT INFORMATION
  Report Type: Spontaneous
  Country: JP (occurrence: JP)
  Receive Date: 20071112
  Receipt Date: 20130829
  Transmission Date: 20140515
  Serious: Yes (Hospitalization, Other)
  Sender: FDA-Public Use
  Company Number: JP-ABBOTT-07P-087-0423438-00

PATIENT
  Age: 31 Year
  Sex: Male

DRUGS (6)
  1. NORVIR SOFT GELATIN CAPSULES [Suspect]
     Indication: HIV INFECTION
     Route: 048
     Dates: start: 20061012, end: 20110824
  2. NORVIR SOFT GELATIN CAPSULES [Suspect]
     Dates: start: 20110825
  3. FOSAMPRENAVIR [Suspect]
     Indication: HIV INFECTION
     Route: 048
     Dates: start: 20061012
  4. EPZICOM [Suspect]
     Indication: HIV INFECTION
     Dosage: 1 IU AXA
     Route: 048
     Dates: start: 20061012
  5. RISPERIDONE [Concomitant]
     Indication: PRODUCT USED FOR UNKNOWN INDICATION
  6. CEPHAZOLIN SODIUM [Concomitant]
     Indication: PRODUCT USED FOR UNKNOWN INDICATION
     Dates: start: 20111220, end: 20111225

REACTIONS (5)
  - Herpes zoster [Recovering/Resolving]
  - Immune reconstitution inflammatory syndrome [Recovering/Resolving]
  - Patella fracture [Unknown]
  - Hypercholesterolaemia [Unknown]
  - Ill-defined disorder [Unknown]
